FAERS Safety Report 7919864-X (Version None)
Quarter: 2011Q4

REPORT INFORMATION
  Report Type: 
  Country: None (occurrence: None)
  Receive Date: 20111115
  Receipt Date: 20111031
  Transmission Date: 20120403
  Serious: Yes (Other)
  Sender: FDA-Public Use
  Company Number: FK201102518

PATIENT
  Age: 18 Year
  Sex: Male

DRUGS (1)
  1. MANNITOL 20% [Suspect]
     Indication: PRODUCT USED FOR UNKNOWN INDICATION
     Dosage: ON LEFT HAND: DORSUM, INTRAVENOUS
     Route: 042

REACTIONS (5)
  - OEDEMA PERIPHERAL [None]
  - PULSE ABSENT [None]
  - GANGRENE [None]
  - CATHETER SITE SWELLING [None]
  - POOR PERIPHERAL CIRCULATION [None]
